FAERS Safety Report 13400031 (Version 2)
Quarter: 2017Q2

REPORT INFORMATION
  Report Type: Report from Study
  Country: US (occurrence: US)
  Receive Date: 20170404
  Receipt Date: 20170609
  Transmission Date: 20170830
  Serious: Yes (Hospitalization, Other)
  Sender: FDA-Public Use
  Company Number: US-GILEAD-2017-0261118

PATIENT
  Age: 54 Year
  Sex: Male

DRUGS (20)
  1. ASPIRIN                            /00002701/ [Concomitant]
     Active Substance: ASPIRIN
  2. FUROSEMIDE. [Concomitant]
     Active Substance: FUROSEMIDE
  3. ZINC. [Concomitant]
     Active Substance: ZINC
  4. PHENERGAN [Concomitant]
     Active Substance: PROMETHAZINE HYDROCHLORIDE
  5. PRAVASTATIN. [Concomitant]
     Active Substance: PRAVASTATIN
  6. VITAMIN B 2 [Concomitant]
  7. XIFAXAN [Concomitant]
     Active Substance: RIFAXIMIN
  8. SODIUM CHLORIDE. [Concomitant]
     Active Substance: SODIUM CHLORIDE
  9. LEVOTHYROXINE SODIUM. [Concomitant]
     Active Substance: LEVOTHYROXINE SODIUM
  10. QUESTRAN [Concomitant]
     Active Substance: CHOLESTYRAMINE
  11. SPIRONOLACTONE. [Concomitant]
     Active Substance: SPIRONOLACTONE
  12. ADCIRCA [Concomitant]
     Active Substance: TADALAFIL
  13. MIRTAZAPINE. [Concomitant]
     Active Substance: MIRTAZAPINE
  14. URSODIOL. [Concomitant]
     Active Substance: URSODIOL
  15. KLOR-CON [Concomitant]
     Active Substance: POTASSIUM CHLORIDE
  16. ZOFRAN [Concomitant]
     Active Substance: ONDANSETRON HYDROCHLORIDE
  17. AMBRISENTAN [Suspect]
     Active Substance: AMBRISENTAN
     Indication: PRODUCT USED FOR UNKNOWN INDICATION
     Dosage: 5 MG, QD
     Route: 065
     Dates: start: 201702
  18. NOVOLIN [Concomitant]
     Active Substance: INSULIN HUMAN
  19. VITAMIN D3 [Concomitant]
     Active Substance: CHOLECALCIFEROL
  20. MIDODRINE HCL [Concomitant]
     Active Substance: MIDODRINE HYDROCHLORIDE

REACTIONS (4)
  - Liver disorder [Unknown]
  - Gastric disorder [Unknown]
  - Pancreatitis [Unknown]
  - Clostridium difficile infection [Unknown]
